FAERS Safety Report 5219880-5 (Version None)
Quarter: 2007Q1

REPORT INFORMATION
  Report Type: 
  Country: None (occurrence: None)
  Receive Date: 20070125
  Receipt Date: 20070118
  Transmission Date: 20070707
  Serious: Yes (Hospitalization)
  Sender: FDA-Public Use
  Company Number: US-JNJFOC-20070104695

PATIENT
  Sex: Female
  Weight: 54.43 kg

DRUGS (10)
  1. INFLIXIMAB [Suspect]
     Indication: RHEUMATOID ARTHRITIS
  2. PREDNISONE TAB [Concomitant]
  3. SPIRONOLACTONE [Concomitant]
  4. METHOTREXATE [Concomitant]
  5. FOLIC ACID [Concomitant]
  6. CALTRATE [Concomitant]
  7. CENTRUM SILVER MULTIVITAMIN [Concomitant]
  8. ADVIL [Concomitant]
  9. LIPITOR [Concomitant]
  10. COSOPT [Concomitant]

REACTIONS (1)
  - ATRIAL FIBRILLATION [None]
